FAERS Safety Report 13709176 (Version 5)
Quarter: 2018Q1

REPORT INFORMATION
  Report Type: Report from Study
  Country: US (occurrence: US)
  Receive Date: 20170702
  Receipt Date: 20180131
  Transmission Date: 20180508
  Serious: Yes (Hospitalization, Other)
  Sender: FDA-Public Use
  Company Number: US-MYLANLABS-2017M1040109

PATIENT
  Age: 24 Year
  Sex: Male
  Weight: 100 kg

DRUGS (1)
  1. CLOZAPINE. [Suspect]
     Active Substance: CLOZAPINE
     Indication: SCHIZOAFFECTIVE DISORDER BIPOLAR TYPE
     Dosage: 200 MG, BID
     Route: 048

REACTIONS (11)
  - Renal failure [Unknown]
  - Infection [Unknown]
  - Lung infection [Unknown]
  - Loss of consciousness [Unknown]
  - Pyrexia [Unknown]
  - Neutropenia [Unknown]
  - Salivary hypersecretion [Unknown]
  - Aspiration [Unknown]
  - Malaise [Unknown]
  - Lethargy [Unknown]
  - Pulmonary mass [Unknown]

NARRATIVE: CASE EVENT DATE: 2017
